FAERS Safety Report 16009549 (Version 1)
Quarter: 2019Q1

REPORT INFORMATION
  Report Type: Spontaneous
  Country: ES (occurrence: ES)
  Receive Date: 20190226
  Receipt Date: 20190226
  Transmission Date: 20190418
  Serious: Yes (Other)
  Sender: FDA-Public Use
  Company Number: ES-CELLTRION INC.-2019ES018918

PATIENT

DRUGS (1)
  1. RITUXIMAB (UNKNOWN) [Suspect]
     Active Substance: RITUXIMAB
     Indication: FACTOR VIII INHIBITION
     Dosage: UNK
     Route: 065

REACTIONS (3)
  - Therapeutic response decreased [Unknown]
  - Product use in unapproved indication [Unknown]
  - Neutropenia [Unknown]
